FAERS Safety Report 24398310 (Version 1)
Quarter: 2024Q4

REPORT INFORMATION
  Report Type: Spontaneous
  Country: US (occurrence: US)
  Receive Date: 20241004
  Receipt Date: 20241004
  Transmission Date: 20250115
  Serious: No
  Sender: INTRA-CELLULAR THERAPIES
  Company Number: US-INTRA-CELLULAR THERAPIES, INC.-2024ICT01461

PATIENT
  Age: 71 Year
  Sex: Female

DRUGS (5)
  1. CAPLYTA [Suspect]
     Active Substance: LUMATEPERONE
     Indication: Bipolar II disorder
     Dosage: 21 MG, 1X/DAY
     Route: 048
     Dates: start: 20240814, end: 20240905
  2. CAPLYTA [Suspect]
     Active Substance: LUMATEPERONE
     Indication: Anxiety
  3. LAMICTAL [Concomitant]
     Active Substance: LAMOTRIGINE
  4. QUETIAPINE [Concomitant]
     Active Substance: QUETIAPINE
  5. PROPRANOLOL [Concomitant]
     Active Substance: PROPRANOLOL HYDROCHLORIDE

REACTIONS (4)
  - Mania [Not Recovered/Not Resolved]
  - Stereotypy [Not Recovered/Not Resolved]
  - Insomnia [Not Recovered/Not Resolved]
  - Akathisia [Not Recovered/Not Resolved]

NARRATIVE: CASE EVENT DATE: 20240101
